FAERS Safety Report 11298568 (Version 1)
Quarter: 2015Q3

REPORT INFORMATION
  Report Type: Spontaneous
  Country: US (occurrence: US)
  Receive Date: 20150722
  Receipt Date: 20150722
  Transmission Date: 20151125
  Serious: No
  Sender: FDA-Public Use
  Company Number: US-ELI_LILLY_AND_COMPANY-US201108008565

PATIENT
  Sex: Male

DRUGS (4)
  1. TESTOSTERONE. [Concomitant]
     Active Substance: TESTOSTERONE
     Dosage: 200 MG, UNKNOWN
     Dates: start: 201009
  2. HUMATROPE [Suspect]
     Active Substance: SOMATROPIN
     Dosage: 3.4 MG, UNKNOWN
     Route: 058
     Dates: start: 20100215
  3. HUMATROPE [Suspect]
     Active Substance: SOMATROPIN
     Dosage: 3.4 MG, UNKNOWN
     Route: 058
     Dates: start: 20100215
  4. TESTOSTERONE. [Concomitant]
     Active Substance: TESTOSTERONE
     Dosage: 200 MG, UNKNOWN
     Dates: start: 201009

REACTIONS (1)
  - Benign lymph node neoplasm [Unknown]
